FAERS Safety Report 13718554 (Version 1)
Quarter: 2017Q3

REPORT INFORMATION
  Report Type: Spontaneous
  Country: JP (occurrence: JP)
  Receive Date: 20170705
  Receipt Date: 20170705
  Transmission Date: 20171127
  Serious: Yes (Hospitalization)
  Sender: FDA-Public Use
  Company Number: JP-PFIZER INC-2017285728

PATIENT
  Age: 79 Year
  Sex: Female

DRUGS (10)
  1. ALDACTONE A [Suspect]
     Active Substance: SPIRONOLACTONE
     Dosage: 25 MG, 1X/DAY
     Route: 048
     Dates: start: 20170428, end: 20170505
  2. SAMSCA [Suspect]
     Active Substance: TOLVAPTAN
     Indication: RIGHT VENTRICULAR FAILURE
     Dosage: 7.5 MG, 1X/DAY
     Route: 048
     Dates: start: 20170425, end: 20170426
  3. LASIX [Concomitant]
     Active Substance: FUROSEMIDE
     Dosage: UNK
     Dates: start: 20170425, end: 20170428
  4. FIRSTCIN [Concomitant]
     Active Substance: CEFOZOPRAN HYDROCHLORIDE
     Dosage: UNK
     Dates: start: 20170425, end: 20170501
  5. HANP [Concomitant]
     Active Substance: CARPERITIDE
     Dosage: UNK
     Dates: start: 20170427, end: 20170507
  6. UNIPHYLLA [Concomitant]
     Active Substance: THEOPHYLLINE ANHYDROUS
     Dosage: 200 MG, UNK
  7. DIART [Suspect]
     Active Substance: AZOSEMIDE
     Dosage: 60 MG, 1X/DAY
     Route: 048
     Dates: start: 20170426, end: 20170429
  8. MAINTATE [Concomitant]
     Active Substance: BISOPROLOL FUMARATE
     Dosage: UNK
  9. SINGULAIR [Concomitant]
     Active Substance: MONTELUKAST SODIUM
     Dosage: UNK
  10. MUCOSOLVAN L [Concomitant]
     Active Substance: AMBROXOL HYDROCHLORIDE
     Dosage: UNK

REACTIONS (4)
  - Hypernatraemia [Recovered/Resolved]
  - Metabolic alkalosis [Recovered/Resolved]
  - Hypokalaemia [Recovered/Resolved]
  - Hypochloraemia [Recovered/Resolved]

NARRATIVE: CASE EVENT DATE: 20170427
